FAERS Safety Report 25786341 (Version 2)
Quarter: 2025Q4

REPORT INFORMATION
  Report Type: Spontaneous
  Country: US (occurrence: US)
  Receive Date: 20250910
  Receipt Date: 20251222
  Transmission Date: 20260118
  Serious: No
  Sender: SANOFI AVENTIS
  Company Number: US-SA-2025SA267735

PATIENT
  Age: 47 Year
  Sex: Female

DRUGS (1)
  1. DUPIXENT [Suspect]
     Active Substance: DUPILUMAB
     Indication: Urticaria
     Dosage: 300 MG, QOW
     Route: 058

REACTIONS (5)
  - Psoriasis [Unknown]
  - Flushing [Unknown]
  - Throat irritation [Unknown]
  - Injection site bruising [Unknown]
  - Product use in unapproved indication [Unknown]
